FAERS Safety Report 21958577 (Version 1)
Quarter: 2023Q1

REPORT INFORMATION
  Report Type: Spontaneous
  Country: US (occurrence: None)
  Receive Date: 20230203
  Receipt Date: 20230203
  Transmission Date: 20230417
  Serious: Yes (Other)
  Sender: FDA-Public Use
  Company Number: None

PATIENT
  Sex: Female

DRUGS (1)
  1. ENTECAVIR [Suspect]
     Active Substance: ENTECAVIR
     Indication: Immune system disorder
     Dosage: OTHER QUANTITY : 0.5MG;?FREQUENCY : AS DIRECTED;?
     Route: 048
     Dates: start: 20230113

REACTIONS (1)
  - Breast cancer female [None]
